FAERS Safety Report 11643472 (Version 1)
Quarter: 2015Q4

REPORT INFORMATION
  Report Type: Spontaneous
  Country: SE (occurrence: SE)
  Receive Date: 20151020
  Receipt Date: 20151020
  Transmission Date: 20160304
  Serious: Yes (Death)
  Sender: FDA-Public Use
  Company Number: SE-PFIZER INC-2015352569

PATIENT
  Age: 34 Year
  Sex: Male

DRUGS (7)
  1. STILNOCT [Suspect]
     Active Substance: ZOLPIDEM TARTRATE
     Dosage: 1 DF, 1X/DAY
     Dates: start: 20150310
  2. VOXRA [Concomitant]
     Active Substance: BUPROPION HYDROCHLORIDE
  3. SEROQUEL [Concomitant]
     Active Substance: QUETIAPINE FUMARATE
  4. LYRICA [Suspect]
     Active Substance: PREGABALIN
     Dosage: 1 DF, 3X/DAY
     Dates: start: 20140902
  5. TEMGESIC [Suspect]
     Active Substance: BUPRENORPHINE HYDROCHLORIDE
     Dosage: 1 DF, 3X/DAY
     Dates: start: 20150420
  6. NAPROXEN. [Concomitant]
     Active Substance: NAPROXEN
  7. BUPROPION. [Suspect]
     Active Substance: BUPROPION
     Dosage: 1 DF, 1X/DAY
     Dates: start: 20150408

REACTIONS (1)
  - Toxicity to various agents [Fatal]

NARRATIVE: CASE EVENT DATE: 201508
